FAERS Safety Report 8149060-5 (Version None)
Quarter: 2012Q1

REPORT INFORMATION
  Report Type: 
  Country: None (occurrence: None)
  Receive Date: 20120218
  Receipt Date: 20110822
  Transmission Date: 20120608
  Serious: No
  Sender: FDA-Public Use
  Company Number: US-ALLERGAN-1111305US

PATIENT
  Sex: Female

DRUGS (7)
  1. BOTULINUM TOXIN TYPE A [Suspect]
     Indication: MIGRAINE
     Dosage: 100 UNITS, SINGLE
     Route: 030
     Dates: start: 20110718, end: 20110718
  2. IMITREX [Concomitant]
     Indication: MIGRAINE
     Route: 048
  3. LAMICTAL [Concomitant]
     Indication: CONVULSION
     Route: 048
  4. CYMBALTA [Concomitant]
     Indication: FIBROMYALGIA
     Route: 048
  5. OXYCODONE HCL [Concomitant]
     Indication: PAIN
     Route: 048
  6. HYDROCODONE [Concomitant]
     Indication: PAIN
     Route: 048
  7. LITHIUM CARBONATE [Concomitant]
     Indication: DEPRESSION
     Route: 048

REACTIONS (2)
  - NAUSEA [None]
  - VOMITING [None]
